FAERS Safety Report 5734955-X (Version None)
Quarter: 2008Q2

REPORT INFORMATION
  Report Type: 
  Country: None (occurrence: None)
  Receive Date: 20080512
  Receipt Date: 20080505
  Transmission Date: 20081010
  Serious: Yes (Death, Hospitalization, Other)
  Sender: FDA-Public Use
  Company Number: DE-BRISTOL-MYERS SQUIBB COMPANY-14170674

PATIENT
  Age: 33 Year
  Sex: Male

DRUGS (9)
  1. SPRYCEL [Suspect]
     Indication: CHRONIC MYELOID LEUKAEMIA
     Dosage: RESTARTED SPRYCEL 06-JAN-2008 TO 23-JAN-2008.
     Dates: start: 20070801
  2. TASIGNA [Concomitant]
     Dates: start: 20070901
  3. GLEEVEC [Concomitant]
     Dates: start: 20050301
  4. PANTOPRAZOLE SODIUM [Concomitant]
  5. MORPHINE SULFATE [Concomitant]
  6. METAMIZOLE SODIUM [Concomitant]
  7. LORAZEPAM [Concomitant]
  8. QUETIAPINE FUMARATE [Concomitant]
  9. CIPROFLOXACIN HCL [Concomitant]
     Dates: end: 20080130

REACTIONS (12)
  - ABDOMINAL DISTENSION [None]
  - ASTHENIA [None]
  - BACK PAIN [None]
  - DEATH [None]
  - GENERAL PHYSICAL HEALTH DETERIORATION [None]
  - HAEMOGLOBIN DECREASED [None]
  - INFECTION [None]
  - MALAISE [None]
  - NAUSEA [None]
  - PAIN IN EXTREMITY [None]
  - PYREXIA [None]
  - TREATMENT NONCOMPLIANCE [None]
